FAERS Safety Report 6025046-1 (Version None)
Quarter: 2008Q4

REPORT INFORMATION
  Report Type: 
  Country: None (occurrence: None)
  Receive Date: 20081230
  Receipt Date: 20081230
  Transmission Date: 20090506
  Serious: Yes (Other)
  Sender: FDA-Public Use
  Company Number: None

PATIENT
  Sex: Female
  Weight: 54.4316 kg

DRUGS (1)
  1. TERBINAFINE HCL [Suspect]
     Indication: BODY TINEA
     Dosage: 250MG QD PO
     Route: 048
     Dates: start: 20081115, end: 20081126

REACTIONS (1)
  - ECZEMA [None]
